FAERS Safety Report 7716426-4 (Version None)
Quarter: 2011Q3

REPORT INFORMATION
  Report Type: 
  Country: None (occurrence: None)
  Receive Date: 20110829
  Receipt Date: 20110822
  Transmission Date: 20111222
  Serious: Yes (Other)
  Sender: FDA-Public Use
  Company Number: PHHY2011AU74925

PATIENT

DRUGS (1)
  1. GILENYA [Suspect]
     Dosage: UNK UKN, OT

REACTIONS (1)
  - TUBERCULOSIS [None]
